FAERS Safety Report 12333047 (Version 4)
Quarter: 2016Q2

REPORT INFORMATION
  Report Type: Spontaneous
  Country: US (occurrence: US)
  Receive Date: 20160504
  Receipt Date: 20160617
  Transmission Date: 20160815
  Serious: No
  Sender: FDA-Public Use
  Company Number: US-PFIZER INC-2016222416

PATIENT
  Age: 70 Year
  Sex: Female

DRUGS (2)
  1. DETROL [Suspect]
     Active Substance: TOLTERODINE TARTRATE
     Indication: URGE INCONTINENCE
     Dosage: 4 MG, DAILY
     Route: 048
     Dates: start: 20140312
  2. LOVASTATIN. [Suspect]
     Active Substance: LOVASTATIN
     Dosage: UNK

REACTIONS (3)
  - Drug hypersensitivity [Recovered/Resolved]
  - Dizziness [Recovered/Resolved]
  - Feeling abnormal [Recovered/Resolved]
